FAERS Safety Report 19168847 (Version 1)
Quarter: 2021Q2

REPORT INFORMATION
  Report Type: Spontaneous
  Country: US (occurrence: US)
  Receive Date: 20210421
  Receipt Date: 20210421
  Transmission Date: 20210717
  Serious: No
  Sender: FDA-Public Use
  Company Number: None

PATIENT
  Age: 63 Year
  Sex: Female
  Weight: 71 kg

DRUGS (17)
  1. BIOTIN [Concomitant]
     Active Substance: BIOTIN
  2. COQ10 MAXIMUM STRENGTH [Concomitant]
  3. VITAMIN D3 [Concomitant]
     Active Substance: CHOLECALCIFEROL
  4. ASPIRIN 81 [Concomitant]
     Active Substance: ASPIRIN
  5. FISH OIL BURP?LESS [Concomitant]
     Active Substance: FISH OIL
  6. COENZYME Q10 [Concomitant]
     Active Substance: DIETARY SUPPLEMENT\UBIDECARENONE
  7. IBUPROFEN. [Concomitant]
     Active Substance: IBUPROFEN
  8. IRBESARTAN. [Concomitant]
     Active Substance: IRBESARTAN
  9. CAPECITABINE. [Suspect]
     Active Substance: CAPECITABINE
     Indication: BREAST CANCER
     Route: 048
     Dates: start: 20210410, end: 20210412
  10. CARDIZEM CD [Concomitant]
     Active Substance: DILTIAZEM HYDROCHLORIDE
  11. MAGNESIUM [Concomitant]
     Active Substance: MAGNESIUM
  12. VALACYCLOVIR HCL [Concomitant]
     Active Substance: VALACYCLOVIR HYDROCHLORIDE
  13. ZETIA [Concomitant]
     Active Substance: EZETIMIBE
  14. MELATONIN ER [Concomitant]
  15. POLYETHYLENE GLYCOL 3350. [Concomitant]
     Active Substance: POLYETHYLENE GLYCOL 3350
  16. ROXICODONE [Concomitant]
     Active Substance: OXYCODONE HYDROCHLORIDE
  17. SERTRALINE HCL [Concomitant]
     Active Substance: SERTRALINE HYDROCHLORIDE

REACTIONS (1)
  - Blister [None]

NARRATIVE: CASE EVENT DATE: 20210412
